FAERS Safety Report 10083723 (Version 1)
Quarter: 2014Q2

REPORT INFORMATION
  Report Type: Spontaneous
  Country: AU (occurrence: None)
  Receive Date: 20140415
  Receipt Date: 20140415
  Transmission Date: 20141212
  Serious: Yes (Other)
  Sender: FDA-Public Use
  Company Number: 2281423

PATIENT
  Age: 47 Year
  Sex: Male

DRUGS (8)
  1. CARBOPLATIN [Suspect]
     Indication: SEMINOMA
     Dates: start: 2011
  2. METHOTREXATE [Suspect]
     Indication: PSORIATIC ARTHROPATHY
     Dosage: 1 WEEK
  3. PREDNISONE [Suspect]
     Indication: PSORIATIC ARTHROPATHY
     Dosage: 9 MG, 1 DAY, ORAL
     Route: 048
  4. LEFLUNOMIDE [Suspect]
     Indication: PSORIATIC ARTHROPATHY
     Dosage: 20 MG, 1 DAY
  5. ETANERCEPT [Suspect]
     Indication: PSORIATIC ARTHROPATHY
     Dates: start: 2011
  6. THERAPEUTIC RADIOPHARMACEUTICALS [Suspect]
     Indication: SEMINOMA
     Dates: start: 2008
  7. NSAID^S [Concomitant]
  8. FLUCONAZOLE [Concomitant]

REACTIONS (5)
  - Oesophageal perforation [None]
  - Thrombosis in device [None]
  - Candida sepsis [None]
  - Osteomyelitis fungal [None]
  - Intervertebral discitis [None]
